FAERS Safety Report 7153384-8 (Version None)
Quarter: 2010Q4

REPORT INFORMATION
  Report Type: 
  Country: None (occurrence: None)
  Receive Date: 20101213
  Receipt Date: 20101202
  Transmission Date: 20110411
  Serious: Yes (Hospitalization)
  Sender: FDA-Public Use
  Company Number: US-JNJFOC-20101004095

PATIENT
  Sex: Female
  Weight: 145.15 kg

DRUGS (6)
  1. REMICADE [Suspect]
     Indication: RHEUMATOID ARTHRITIS
     Route: 042
  2. METHOTREXATE [Concomitant]
     Indication: RHEUMATOID ARTHRITIS
     Route: 048
  3. METHOTREXATE [Concomitant]
     Route: 048
  4. SULFASALAZINE [Concomitant]
     Indication: RHEUMATOID ARTHRITIS
     Dosage: 4 PILLS EVERY MORNING
     Route: 048
  5. FOLIC ACID [Concomitant]
  6. PLAQUENIL [Concomitant]
     Indication: RHEUMATOID ARTHRITIS

REACTIONS (5)
  - HYPERTENSION [None]
  - INFUSION RELATED REACTION [None]
  - PLEURAL EFFUSION [None]
  - PNEUMONIA [None]
  - VULVOVAGINAL MYCOTIC INFECTION [None]
